FAERS Safety Report 10674125 (Version 4)
Quarter: 2015Q2

REPORT INFORMATION
  Report Type: Report from Study
  Country: US (occurrence: US)
  Receive Date: 20141224
  Receipt Date: 20150430
  Transmission Date: 20150821
  Serious: Yes (Other)
  Sender: FDA-Public Use
  Company Number: US-SANOFI-AVENTIS-2013SA040988

PATIENT
  Age: 55 Year
  Sex: Female

DRUGS (1)
  1. AUBAGIO [Suspect]
     Active Substance: TERIFLUNOMIDE
     Indication: MULTIPLE SCLEROSIS
     Route: 048
     Dates: start: 20130121

REACTIONS (12)
  - Insomnia [Unknown]
  - Alopecia [Unknown]
  - Muscle twitching [Not Recovered/Not Resolved]
  - Mania [Unknown]
  - Body temperature increased [Unknown]
  - Walking aid user [Not Recovered/Not Resolved]
  - Sciatica [Not Recovered/Not Resolved]
  - Hypokinesia [Unknown]
  - Hypoaesthesia [Not Recovered/Not Resolved]
  - Condition aggravated [Unknown]
  - Limb discomfort [Not Recovered/Not Resolved]
  - Rash [Unknown]

NARRATIVE: CASE EVENT DATE: 2015
